FAERS Safety Report 10154723 (Version 1)
Quarter: 2014Q2

REPORT INFORMATION
  Report Type: Spontaneous
  Country: CA (occurrence: CA)
  Receive Date: 20140506
  Receipt Date: 20140506
  Transmission Date: 20141212
  Serious: Yes (Hospitalization, Other)
  Sender: FDA-Public Use
  Company Number: CA-SA-2014SA056055

PATIENT
  Sex: Male

DRUGS (1)
  1. ELIGARD [Suspect]
     Indication: PROSTATE CANCER
     Dosage: FREQUENCY:EVERY 4 MONTH
     Route: 065
     Dates: start: 20130502

REACTIONS (2)
  - Urinary bladder haemorrhage [Unknown]
  - Hospitalisation [Unknown]
